FAERS Safety Report 5885948-3 (Version None)
Quarter: 2008Q3

REPORT INFORMATION
  Report Type: 
  Country: None (occurrence: None)
  Receive Date: 20080917
  Receipt Date: 20080909
  Transmission Date: 20090109
  Serious: Yes (Other)
  Sender: FDA-Public Use
  Company Number: US-BAYER-200833211NA

PATIENT

DRUGS (6)
  1. NEXAVAR [Suspect]
     Indication: PANCREATIC CARCINOMA
     Route: 048
  2. REGLAN [Concomitant]
  3. NEXIUM [Concomitant]
  4. AMBIEN CR [Concomitant]
  5. COUMADIN [Concomitant]
     Dosage: TOTAL DAILY DOSE: 5 MG
  6. NORCO [Concomitant]

REACTIONS (2)
  - DYSKINESIA [None]
  - PARKINSON'S DISEASE [None]
